FAERS Safety Report 5452321-1 (Version None)
Quarter: 2007Q3

REPORT INFORMATION
  Report Type: 
  Country: None (occurrence: None)
  Receive Date: 20070912
  Receipt Date: 20070912
  Transmission Date: 20080115
  Serious: Yes (Other)
  Sender: FDA-Public Use
  Company Number: None

PATIENT
  Age: 32 Year
  Sex: Female
  Weight: 79.3795 kg

DRUGS (1)
  1. MEFLOQUINE [Suspect]
     Indication: MALARIA PROPHYLAXIS
     Dosage: 250 MG WEEKLY PO DOSE TAKEN
     Route: 048
     Dates: start: 20070726, end: 20070726

REACTIONS (4)
  - ANXIETY [None]
  - IMPAIRED DRIVING ABILITY [None]
  - MENTAL DISORDER [None]
  - PANIC ATTACK [None]
